FAERS Safety Report 8836448 (Version 2)
Quarter: 2012Q4

REPORT INFORMATION
  Report Type: 
  Country: GB (occurrence: GB)
  Receive Date: 20121011
  Receipt Date: 20121029
  Transmission Date: 20130627
  Serious: Yes (Hospitalization)
  Sender: FDA-Public Use
  Company Number: GB-B.I. PHARMACEUTICALS,INC./RIDGEFIELD-2012-UK-01356UK

PATIENT
  Age: 72 Year
  Sex: Female

DRUGS (7)
  1. DABIGATRAN [Suspect]
     Indication: CEREBROVASCULAR ACCIDENT PROPHYLAXIS
     Route: 048
     Dates: start: 20120725, end: 20121004
  2. LEVOTHYROXINE [Concomitant]
     Indication: THYROID OPERATION
     Dosage: 100 mcg
     Route: 048
  3. RAMIPRIL [Concomitant]
     Dosage: 1.25 mg
     Route: 048
  4. ASPIRIN [Concomitant]
     Dosage: 75 mg
     Route: 048
  5. BISOPROLOL [Concomitant]
     Dosage: 2.5 mg
     Route: 048
  6. SIMVASTATIN [Concomitant]
     Dosage: 40 mg
     Route: 048
  7. AMIODARONE [Concomitant]
     Dosage: 200 mg
     Route: 048
     Dates: start: 20121010

REACTIONS (6)
  - Atrial fibrillation [Recovered/Resolved]
  - Abdominal pain [Not Recovered/Not Resolved]
  - Abdominal distension [Not Recovered/Not Resolved]
  - Abdominal tenderness [Not Recovered/Not Resolved]
  - Dyspnoea [Recovered/Resolved]
  - Chest pain [Recovered/Resolved]
